FAERS Safety Report 17857408 (Version 2)
Quarter: 2020Q3

REPORT INFORMATION
  Report Type: Report from Study
  Country: None (occurrence: US)
  Receive Date: 20200603
  Receipt Date: 20200706
  Transmission Date: 20201103
  Serious: Yes (Other)
  Sender: FDA-Public Use
  Company Number: US-ABBVIE-20K-163-3421766-00

PATIENT
  Age: 80 Year
  Sex: Male

DRUGS (1)
  1. HUMIRA [Suspect]
     Active Substance: ADALIMUMAB
     Indication: CROHN^S DISEASE
     Route: 058

REACTIONS (10)
  - Loss of consciousness [Unknown]
  - Accident [Recovering/Resolving]
  - Exostosis [Unknown]
  - Fall [Unknown]
  - Mobility decreased [Unknown]
  - Fatigue [Unknown]
  - Arthritis [Unknown]
  - Foot deformity [Unknown]
  - Somnolence [Unknown]
  - Scratch [Unknown]

NARRATIVE: CASE EVENT DATE: 202004
